FAERS Safety Report 4353680-3 (Version None)
Quarter: 2004Q2

REPORT INFORMATION
  Report Type: 
  Country: None (occurrence: None)
  Receive Date: 20040430
  Receipt Date: 20040422
  Transmission Date: 20050107
  Serious: Yes (Hospitalization, Disabling)
  Sender: FDA-Public Use
  Company Number: 2004UW01717

PATIENT
  Age: 53 Year
  Sex: Male
  Weight: 68.0396 kg

DRUGS (4)
  1. IRESSA [Suspect]
     Indication: LUNG NEOPLASM MALIGNANT
     Dosage: 250 MG QD PO
     Route: 048
     Dates: start: 20031101
  2. PRAVACHOL [Concomitant]
  3. COZAAR [Concomitant]
  4. HUMALOG [Concomitant]

REACTIONS (2)
  - DISABILITY [None]
  - HOSPITALISATION [None]
